FAERS Safety Report 8105426-0 (Version None)
Quarter: 2012Q1

REPORT INFORMATION
  Report Type: 
  Country: None (occurrence: None)
  Receive Date: 20120201
  Receipt Date: 20120119
  Transmission Date: 20120608
  Serious: Yes (Hospitalization, Other)
  Sender: FDA-Public Use
  Company Number: US-ELI_LILLY_AND_COMPANY-US201008007882

PATIENT
  Sex: Female
  Weight: 48.526 kg

DRUGS (26)
  1. HUMALOG [Suspect]
     Dosage: 1 U, AT BREAKFAST EVERY 15MG OF CARBOHYDRATES
  2. PREDNISONE TAB [Concomitant]
     Dosage: 15 MG, DAILY (1/D) AT BREAKFAST
  3. PREDNISONE TAB [Concomitant]
     Dosage: 6 MG, UNK
  4. MULTI-VITAMINS [Concomitant]
  5. FORTEO [Suspect]
     Dosage: 20 UG, QD
     Route: 065
  6. SIMVASTATIN [Concomitant]
     Dosage: 10 MG, AT BEDTIME
  7. AMLODIPINE BESYLATE [Concomitant]
     Dosage: 5 MG, DAILY (1/D) AT LUNCH
  8. FORTEO [Suspect]
     Dosage: 20 UG, QD
     Route: 065
  9. FORTEO [Suspect]
     Dosage: 20 UG, QD
     Route: 065
  10. FORTEO [Suspect]
     Dosage: 20 UG, QD
     Route: 065
  11. DIGOXIN [Concomitant]
     Dosage: 1 D/F, DAILY (1/D) WITH BREAKFAST
  12. OMEPRAZOLE [Concomitant]
     Dosage: 20 MG, DAILY (1/D) 1/2 HOUR BEFORE BREAKFAST
  13. FORTEO [Suspect]
     Indication: OSTEOPOROSIS
     Dosage: 20 UG, QD
     Route: 065
     Dates: start: 20100822
  14. PREDNISONE TAB [Concomitant]
     Dosage: 30 MG, UNK
  15. CALTRATE D                         /00944201/ [Concomitant]
     Dosage: 1 D/F, 2/D AT BREAKFAST AND LUNCH
  16. FORTEO [Suspect]
     Dosage: 20 UG, QD
  17. FORTEO [Suspect]
     Dosage: 20 UG, QD
     Route: 065
  18. HUMALOG [Suspect]
     Dosage: 1 U, AT LUNCH EVERY 15MG OF CARBOHYDRATES
  19. HUMALOG [Suspect]
     Dosage: 1 U, AT DINNER EVERY 12MG OF CARBOHYDRATES
  20. METOPROLOL TARTRATE [Concomitant]
     Dosage: 25 MG, 2/D AT BREAKFAST AND DINNER
  21. LANTUS [Concomitant]
     Dosage: 24 U, DAILY (1/D)
  22. MULTI-VITAMIN [Concomitant]
     Dosage: UNK, DAILY (1/D) AT LUNCH
  23. MINERAL [Concomitant]
     Dosage: UNK, DAILY (1/D) AT LUNCH
  24. FORTEO [Suspect]
     Dosage: 20 UG, QD
     Route: 065
  25. DIOVAN [Concomitant]
     Dosage: 160 MG, 2/D AT BREAKFAST AND DINNER
  26. ASPIRIN [Concomitant]
     Dosage: 81 MG, DAILY (1/D) AT LUNCH

REACTIONS (30)
  - MUSCLE SPASMS [None]
  - WEIGHT FLUCTUATION [None]
  - DRUG DOSE OMISSION [None]
  - BENIGN NEOPLASM [None]
  - DRY MOUTH [None]
  - BALANCE DISORDER [None]
  - CERUMEN IMPACTION [None]
  - MUSCULOSKELETAL DISCOMFORT [None]
  - NASOPHARYNGITIS [None]
  - FALL [None]
  - MEMORY IMPAIRMENT [None]
  - DIZZINESS [None]
  - PRESYNCOPE [None]
  - LIMB DISCOMFORT [None]
  - COUGH [None]
  - DEVICE MISUSE [None]
  - PAIN IN EXTREMITY [None]
  - ARRHYTHMIA [None]
  - HOSPITALISATION [None]
  - TOOTH INJURY [None]
  - LOSS OF CONSCIOUSNESS [None]
  - HEART RATE INCREASED [None]
  - RHINORRHOEA [None]
  - EXCORIATION [None]
  - PARAESTHESIA [None]
  - MASS [None]
  - URINARY TRACT INFECTION [None]
  - BLOOD GLUCOSE INCREASED [None]
  - PAIN [None]
  - HEAD INJURY [None]
